FAERS Safety Report 15785526 (Version 1)
Quarter: 2018Q4

REPORT INFORMATION
  Report Type: Spontaneous
  Country: US (occurrence: US)
  Receive Date: 20181212
  Receipt Date: 20181212
  Transmission Date: 20190205
  Serious: Yes (Hospitalization, Disabling)
  Sender: FDA-Public Use
  Company Number: None

PATIENT
  Age: 63 Year
  Sex: Female
  Weight: 83.91 kg

DRUGS (1)
  1. ZYLOPRIM [Suspect]
     Active Substance: ALLOPURINOL
     Indication: GOUT
     Dosage: ?          QUANTITY:100 MG MILLIGRAM(S);?
     Route: 048
     Dates: start: 20180326, end: 20180402

REACTIONS (8)
  - Drug eruption [None]
  - Blood glucose increased [None]
  - Skin discolouration [None]
  - Alopecia [None]
  - Rash generalised [None]
  - Dysstasia [None]
  - Influenza [None]
  - Onychomadesis [None]
